FAERS Safety Report 6966097-X (Version None)
Quarter: 2010Q3

REPORT INFORMATION
  Report Type: 
  Country: None (occurrence: None)
  Receive Date: 20100903
  Receipt Date: 20100823
  Transmission Date: 20110219
  Serious: Yes (Other)
  Sender: FDA-Public Use
  Company Number: PHHY2010AU56994

PATIENT
  Sex: Female

DRUGS (2)
  1. GLEEVEC [Suspect]
     Indication: CHRONIC MYELOID LEUKAEMIA
     Dosage: 400 MG
     Route: 048
  2. LIGNOCAINE HYDROCHLORIDE AND ADRENALINE [Suspect]
     Indication: DENTAL COSMETIC PROCEDURE
     Dosage: UNK

REACTIONS (4)
  - DENTAL OPERATION [None]
  - FATIGUE [None]
  - MIGRAINE [None]
  - VISUAL IMPAIRMENT [None]
